FAERS Safety Report 9664309 (Version 1)
Quarter: 2013Q4

REPORT INFORMATION
  Report Type: Spontaneous
  Country: FR (occurrence: FR)
  Receive Date: 20131101
  Receipt Date: 20131101
  Transmission Date: 20140711
  Serious: Yes (Hospitalization, Other)
  Sender: FDA-Public Use
  Company Number: FR-PFIZER INC-2013306811

PATIENT
  Age: 35 Year
  Sex: Female

DRUGS (4)
  1. CYTOTEC [Suspect]
     Indication: ABORTION INDUCED
     Dosage: 400 UG, 3X/DAY
     Route: 048
     Dates: start: 20130226, end: 20130226
  2. DOSTINEX [Suspect]
     Indication: SUPPRESSED LACTATION
     Dosage: 1.5 MG, SINGLE
     Route: 048
     Dates: start: 20130227, end: 20130227
  3. MIFEGYNE [Suspect]
     Indication: ABORTION INDUCED
     Dosage: 600 MG, SINGLE
     Route: 048
     Dates: start: 20130226, end: 20130226
  4. LEVOTHYROX [Concomitant]

REACTIONS (4)
  - Off label use [Recovered/Resolved]
  - Pulmonary embolism [Recovered/Resolved]
  - Pulmonary infarction [Unknown]
  - Respiratory failure [Unknown]
